FAERS Safety Report 8759538 (Version 3)
Quarter: 2013Q1

REPORT INFORMATION
  Report Type: Report from Study
  Country: BR (occurrence: BR)
  Receive Date: 20120829
  Receipt Date: 20130213
  Transmission Date: 20140127
  Serious: Yes (Other)
  Sender: FDA-Public Use
  Company Number: BR-BAYER-2012-086150

PATIENT
  Age: 57 Year
  Sex: Male
  Weight: 74 kg

DRUGS (2)
  1. SORAFENIB (RAF KINASE INHIBITOR) [Suspect]
     Indication: HEPATIC CANCER
     Dosage: 400 MG, BID
     Route: 048
     Dates: start: 20120816, end: 20120821
  2. DOXAZOSIN [Concomitant]
     Indication: PROSTATIC DISORDER
     Dosage: 4 MG, BID
     Route: 048
     Dates: start: 2002

REACTIONS (8)
  - Headache [Recovered/Resolved]
  - Burning sensation [Recovered/Resolved]
  - Swelling face [Recovered/Resolved]
  - Skin exfoliation [Recovered/Resolved]
  - Deformity [Recovered/Resolved]
  - Pain in extremity [Recovered/Resolved]
  - Facial pain [Recovered/Resolved]
  - Skin exfoliation [Recovered/Resolved]
